FAERS Safety Report 8200209-5 (Version None)
Quarter: 2012Q1

REPORT INFORMATION
  Report Type: 
  Country: None (occurrence: None)
  Receive Date: 20120312
  Receipt Date: 20120305
  Transmission Date: 20120608
  Serious: Yes (Other)
  Sender: FDA-Public Use
  Company Number: CA-PFIZER INC-2012059806

PATIENT
  Age: 44 Year
  Sex: Male
  Weight: 89.796 kg

DRUGS (2)
  1. CIALIS [Concomitant]
     Dosage: 5 MG, UNK
  2. CAVERJECT [Suspect]
     Indication: ERECTILE DYSFUNCTION
     Dosage: 10 IU, UNK
     Dates: start: 20120215, end: 20120101

REACTIONS (2)
  - PENILE PAIN [None]
  - GROIN PAIN [None]
